FAERS Safety Report 20162264 (Version 1)
Quarter: 2021Q4

REPORT INFORMATION
  Report Type: Report from Study
  Country: AU (occurrence: AU)
  Receive Date: 20211208
  Receipt Date: 20211208
  Transmission Date: 20220303
  Serious: Yes (Other)
  Sender: FDA-Public Use
  Company Number: AU-BAUSCH-BL-2021-040127

PATIENT
  Age: 14 Year

DRUGS (15)
  1. DEXAMETHASONE [Suspect]
     Active Substance: DEXAMETHASONE
     Indication: Hodgkin^s disease
     Dosage: 3 CYCLES OF DICE
     Route: 065
  2. PREDNISOLONE [Suspect]
     Active Substance: PREDNISOLONE
     Indication: Pulmonary hypertension
     Dosage: 6 CYCLES OF COPP/ABV, 1 CYCLE OF BEACOPP
     Route: 048
  3. PREDNISOLONE [Suspect]
     Active Substance: PREDNISOLONE
     Indication: Hodgkin^s disease
  4. CYCLOPHOSPHAMIDE [Suspect]
     Active Substance: CYCLOPHOSPHAMIDE
     Indication: Hodgkin^s disease
     Dosage: 6 CYCLES OF COPP/ABV, 1 CYCLE OF BEACOPP, 3 CYCLES OF DICE PLUS 1 CYCLOPHOSPHAMIDE
     Route: 065
  5. VINCRISTINE [Suspect]
     Active Substance: VINCRISTINE
     Indication: Hodgkin^s disease
     Dosage: 6 CYCLES OF COPP/ABV; 1 CYCLE OF BEACOPP
     Route: 065
  6. PROCARBAZINE [Suspect]
     Active Substance: PROCARBAZINE
     Indication: Hodgkin^s disease
     Dosage: 6 CYCLES OF COPP/ABV; 1 CYCLE OF BEACOPP
     Route: 065
  7. ADRIAMYCIN [Suspect]
     Active Substance: DOXORUBICIN HYDROCHLORIDE
     Indication: Hodgkin^s disease
     Dosage: 6 CYCLES OF COPP/ABV, 1 CYCLE OF BEACOPP
     Route: 065
  8. BLEOMYCIN [Suspect]
     Active Substance: BLEOMYCIN SULFATE
     Indication: Hodgkin^s disease
     Dosage: 6 CYCLES OF COPP/ABV, 1 CYCLE OF BEACOPP
     Route: 065
  9. VINBLASTINE [Suspect]
     Active Substance: VINBLASTINE
     Indication: Hodgkin^s disease
     Dosage: 6 CYCLES OF COPP/ABV
     Route: 065
  10. ETOPOSIDE [Suspect]
     Active Substance: ETOPOSIDE
     Indication: Hodgkin^s disease
     Dosage: 1 CYCLE OF BEACOPP, 3 CYCLES OF DICE AND BEAM
     Route: 065
  11. ETOPOSIDE [Suspect]
     Active Substance: ETOPOSIDE
     Indication: Prophylaxis against transplant rejection
  12. IFOSFAMIDE [Suspect]
     Active Substance: IFOSFAMIDE
     Indication: Hodgkin^s disease
     Dosage: 3 CYCLES OF DICE
     Route: 065
  13. CYTARABINE [Concomitant]
     Active Substance: CYTARABINE
     Indication: Prophylaxis against transplant rejection
     Dosage: BEAM
  14. MELPHALAN [Concomitant]
     Active Substance: MELPHALAN
     Indication: Prophylaxis against transplant rejection
     Dosage: BEAM
  15. BICNU [Concomitant]
     Active Substance: CARMUSTINE
     Indication: Prophylaxis against transplant rejection
     Dosage: BEAM

REACTIONS (1)
  - Osteonecrosis [Recovering/Resolving]
